FAERS Safety Report 4320921-8 (Version None)
Quarter: 2004Q1

REPORT INFORMATION
  Report Type: 
  Country: None (occurrence: None)
  Receive Date: 20040318
  Receipt Date: 20040305
  Transmission Date: 20041129
  Serious: Yes (Hospitalization)
  Sender: FDA-Public Use
  Company Number: 205082

PATIENT
  Age: 68 Year
  Sex: Male

DRUGS (3)
  1. RITUXAN [Suspect]
     Indication: LYMPHOMA
     Dosage: 500 MG, 1/MONTH, INTRAVENOUS
     Route: 042
     Dates: start: 20031028, end: 20031215
  2. VINCRISTINE [Concomitant]
  3. DOXORUBICIN HYDROCHLORIDE [Concomitant]

REACTIONS (1)
  - HEPATITIS C [None]
